FAERS Safety Report 11118875 (Version 1)
Quarter: 2015Q2

REPORT INFORMATION
  Report Type: Spontaneous
  Country: US (occurrence: None)
  Receive Date: 20150515
  Receipt Date: 20150515
  Transmission Date: 20150821
  Serious: No
  Sender: FDA-Public Use
  Company Number: None

PATIENT
  Age: 37 Year
  Sex: Female
  Weight: 102.06 kg

DRUGS (14)
  1. RANITIDINE [Suspect]
     Active Substance: RANITIDINE\RANITIDINE HYDROCHLORIDE
     Indication: DYSPEPSIA
     Dosage: 1 PILL AT BEDTIME, ONCE DAILY, TAKEN BY MOUTH
     Route: 048
     Dates: start: 20150513, end: 20150514
  2. FLONASE [Concomitant]
     Active Substance: FLUTICASONE PROPIONATE
  3. IMMUNOTHERAPY TREATMENT [Concomitant]
     Active Substance: UNSPECIFIED INGREDIENT
  4. AMBIEN [Concomitant]
     Active Substance: ZOLPIDEM TARTRATE
  5. FLEXERIL [Concomitant]
     Active Substance: CYCLOBENZAPRINE HYDROCHLORIDE
  6. MYZRILA [Concomitant]
  7. PROTONIX [Concomitant]
     Active Substance: PANTOPRAZOLE SODIUM
  8. ZYRTEC [Concomitant]
     Active Substance: CETIRIZINE HYDROCHLORIDE
  9. AIRBORNE [Concomitant]
     Active Substance: HERBALS\MINERALS\VITAMINS
  10. RANITIDINE [Suspect]
     Active Substance: RANITIDINE\RANITIDINE HYDROCHLORIDE
     Indication: FLATULENCE
     Dosage: 1 PILL AT BEDTIME, ONCE DAILY, TAKEN BY MOUTH
     Route: 048
     Dates: start: 20150513, end: 20150514
  11. RELPAX [Concomitant]
     Active Substance: ELETRIPTAN HYDROBROMIDE
  12. RANITIDINE [Suspect]
     Active Substance: RANITIDINE\RANITIDINE HYDROCHLORIDE
     Indication: HIATUS HERNIA
     Dosage: 1 PILL AT BEDTIME, ONCE DAILY, TAKEN BY MOUTH
     Route: 048
     Dates: start: 20150513, end: 20150514
  13. DILTIAZEM [Concomitant]
     Active Substance: DILTIAZEM
  14. WOMEN^S VITAMINS [Concomitant]

REACTIONS (4)
  - Dyspnoea [None]
  - Heart rate increased [None]
  - Chest discomfort [None]
  - Insomnia [None]

NARRATIVE: CASE EVENT DATE: 20150513
